FAERS Safety Report 8453783-8 (Version None)
Quarter: 2012Q2

REPORT INFORMATION
  Report Type: 
  Country: None (occurrence: None)
  Receive Date: 20120323
  Receipt Date: 20111209
  Transmission Date: 20120825
  Serious: Yes (Disabling, Other)
  Sender: FDA-Public Use
  Company Number: 163-21880-11110406

PATIENT
  Age: 72 Year
  Sex: Female

DRUGS (11)
  1. BENAZEPRIL HYDROCHLORIDE [Concomitant]
  2. ASPIRIN [Concomitant]
  3. REVLIMID [Suspect]
     Indication: MULTIPLE MYELOMA
     Dosage: 25 MG, 1 IN 1 D, PO; 15 MG, 1 IN 1 D, PO; 25 MG, Q DAY FOR 21 DAYS EACH MONTH, PO
     Route: 048
     Dates: start: 20081101
  4. REVLIMID [Suspect]
     Indication: MULTIPLE MYELOMA
     Dosage: 25 MG, 1 IN 1 D, PO; 15 MG, 1 IN 1 D, PO; 25 MG, Q DAY FOR 21 DAYS EACH MONTH, PO
     Route: 048
     Dates: start: 20110601, end: 20111014
  5. REVLIMID [Suspect]
     Indication: MULTIPLE MYELOMA
     Dosage: 25 MG, 1 IN 1 D, PO; 15 MG, 1 IN 1 D, PO; 25 MG, Q DAY FOR 21 DAYS EACH MONTH, PO
     Route: 048
     Dates: start: 20101101
  6. POTASSIUM CHLORIDE [Concomitant]
  7. AMLODIPINE [Concomitant]
  8. CARVEDILOL [Concomitant]
  9. HYOSCYAMINE (HYOSCYAMINE) [Concomitant]
  10. COUMADN (WARFAIN SODIUM) [Concomitant]
  11. FUROSEMIDE [Concomitant]

REACTIONS (2)
  - CATARACT [None]
  - VISION BLURRED [None]
